FAERS Safety Report 9592081 (Version 1)
Quarter: 2013Q4

REPORT INFORMATION
  Report Type: Spontaneous
  Country: US (occurrence: US)
  Receive Date: 20131004
  Receipt Date: 20131004
  Transmission Date: 20140711
  Serious: No
  Sender: FDA-Public Use
  Company Number: US-B.I. PHARMACEUTICALS,INC./RIDGEFIELD-2013-BI-30365BP

PATIENT
  Age: 76 Year
  Sex: Female

DRUGS (10)
  1. PRADAXA [Suspect]
     Indication: ATRIAL FIBRILLATION
     Dosage: 300 MG
     Route: 048
     Dates: start: 201307, end: 20130913
  2. AMIODARONE [Concomitant]
  3. SPIRIVA [Concomitant]
  4. NITROGLYCERIN [Concomitant]
     Indication: ANGINA PECTORIS
  5. UNSPECIFIED THYROID MEDICATION [Concomitant]
  6. MIRALAX [Concomitant]
  7. TEMAZEPAM [Concomitant]
  8. CLORAZEPATE [Concomitant]
  9. DULCOLAX [Concomitant]
  10. ASPIRIN [Concomitant]

REACTIONS (1)
  - Contusion [Not Recovered/Not Resolved]
